FAERS Safety Report 6098961-0 (Version None)
Quarter: 2009Q1

REPORT INFORMATION
  Report Type: 
  Country: None (occurrence: None)
  Receive Date: 20090302
  Receipt Date: 20090220
  Transmission Date: 20090719
  Serious: No
  Sender: FDA-Public Use
  Company Number: MX-ELI_LILLY_AND_COMPANY-MX200812000434

PATIENT
  Age: 42 Year
  Sex: Female

DRUGS (2)
  1. CYMBALTA [Suspect]
     Indication: DEPRESSION
     Dosage: 30 MG, UNKNOWN
     Route: 048
     Dates: start: 20081116, end: 20081118
  2. MOBICOX [Concomitant]
     Indication: PSORIATIC ARTHROPATHY
     Dosage: 15 MG, DAILY (1/D)
     Route: 065

REACTIONS (1)
  - GENERALISED ANXIETY DISORDER [None]
